FAERS Safety Report 17696976 (Version 3)
Quarter: 2020Q2

REPORT INFORMATION
  Report Type: Spontaneous
  Country: US (occurrence: US)
  Receive Date: 20200423
  Receipt Date: 20200604
  Transmission Date: 20200714
  Serious: Yes (Other)
  Sender: FDA-Public Use
  Company Number: US-GILEAD-2020-0459741

PATIENT
  Sex: Male

DRUGS (12)
  1. ASPIRINE [Concomitant]
     Active Substance: ASPIRIN
  2. LATANOPROST. [Concomitant]
     Active Substance: LATANOPROST
  3. GABAPENTIN. [Concomitant]
     Active Substance: GABAPENTIN
  4. NIFEDIPINE. [Concomitant]
     Active Substance: NIFEDIPINE
  5. SOFOSBUVIR;VELPATASVIR [Suspect]
     Active Substance: SOFOSBUVIR\VELPATASVIR
     Indication: CHRONIC HEPATITIS C
     Dosage: 1 DOSAGE FORM, QD
     Route: 048
     Dates: start: 20200328
  6. CALCIUM [Concomitant]
     Active Substance: CALCIUM
  7. HYDRALAZINE HYDROCHLORIDE. [Concomitant]
     Active Substance: HYDRALAZINE HYDROCHLORIDE
  8. HUMALOG [Concomitant]
     Active Substance: INSULIN LISPRO
  9. CLOPIDOGREL [Concomitant]
     Active Substance: CLOPIDOGREL BISULFATE
  10. ATORVASTATIN CALCIUM. [Concomitant]
     Active Substance: ATORVASTATIN CALCIUM
  11. ACETAMINOPHEN. [Concomitant]
     Active Substance: ACETAMINOPHEN
  12. BASAGLAR [Concomitant]
     Active Substance: INSULIN GLARGINE

REACTIONS (6)
  - Dialysis [Unknown]
  - Vomiting [Recovered/Resolved with Sequelae]
  - Intentional dose omission [Recovered/Resolved]
  - Malaise [Not Recovered/Not Resolved]
  - Gastrooesophageal reflux disease [Not Recovered/Not Resolved]
  - Diarrhoea [Recovered/Resolved with Sequelae]
